FAERS Safety Report 19748786 (Version 1)
Quarter: 2021Q3

REPORT INFORMATION
  Report Type: Spontaneous
  Country: US (occurrence: US)
  Receive Date: 20210826
  Receipt Date: 20210826
  Transmission Date: 20211014
  Serious: Yes (Hospitalization, Other)
  Sender: FDA-Public Use
  Company Number: US-AUROBINDO-AUR-APL-2014-02353

PATIENT
  Age: 44 Year
  Sex: Female

DRUGS (6)
  1. LIDOCAINE HYDROCHLORIDE INJECTION USP (AMPULES) 1%(10MG/ML) [Suspect]
     Active Substance: LIDOCAINE HYDROCHLORIDE
     Dosage: UNK UNK,UNK,
     Route: 058
  2. CIDEX [Suspect]
     Active Substance: GLUTARAL
     Indication: PRODUCT USED FOR UNKNOWN INDICATION
     Dosage: UNK
     Route: 065
  3. LIDOCAINE. [Suspect]
     Active Substance: LIDOCAINE
     Indication: GASTROOESOPHAGEAL REFLUX DISEASE
     Dosage: 1 DOSAGE FORM (20 MG/ML )
     Route: 065
  4. PROPOFOL. [Suspect]
     Active Substance: PROPOFOL
     Indication: PRODUCT USED FOR UNKNOWN INDICATION
     Dosage: UNK
     Route: 065
  5. METHYL PARAHYDROXYBENZOATE [Concomitant]
     Indication: GASTROOESOPHAGEAL REFLUX DISEASE
     Dosage: UNK
     Route: 065
  6. MAALOX ANTACID [Concomitant]
     Active Substance: ALUMINUM HYDROXIDE\DIMETHICONE\MAGNESIUM HYDROXIDE
     Indication: GASTROOESOPHAGEAL REFLUX DISEASE
     Dosage: UNK
     Route: 065

REACTIONS (10)
  - Dysphagia [Recovered/Resolved]
  - Abdominal pain [Recovered/Resolved]
  - Tryptase increased [Recovered/Resolved]
  - Type I hypersensitivity [Recovered/Resolved]
  - Erythema [Unknown]
  - Angioedema [Recovered/Resolved]
  - Urticaria [Unknown]
  - Anaphylactic reaction [Recovered/Resolved]
  - Dyspnoea [Recovered/Resolved]
  - Urticaria [Recovered/Resolved]
